FAERS Safety Report 19393256 (Version 1)
Quarter: 2021Q2

REPORT INFORMATION
  Report Type: Spontaneous
  Country: US (occurrence: US)
  Receive Date: 20210608
  Receipt Date: 20210608
  Transmission Date: 20210717
  Serious: Yes (Other)
  Sender: FDA-Public Use
  Company Number: None

PATIENT
  Sex: Female

DRUGS (2)
  1. SYNTHROID [Suspect]
     Active Substance: LEVOTHYROXINE SODIUM
  2. CYTOMEL [Concomitant]
     Active Substance: LIOTHYRONINE SODIUM

REACTIONS (8)
  - Condition aggravated [None]
  - Product substitution issue [None]
  - Disturbance in attention [None]
  - Asthenia [None]
  - Illness [None]
  - Therapy interrupted [None]
  - Impaired quality of life [None]
  - Hypersomnia [None]

NARRATIVE: CASE EVENT DATE: 20200901
